FAERS Safety Report 7252828-0 (Version None)
Quarter: 2011Q1

REPORT INFORMATION
  Report Type: 
  Country: None (occurrence: None)
  Receive Date: 20110129
  Receipt Date: 20100120
  Transmission Date: 20110831
  Serious: Yes (Other)
  Sender: FDA-Public Use
  Company Number: US-ABBOTT-10P-163-0620693-00

PATIENT
  Sex: Female
  Weight: 71.278 kg

DRUGS (2)
  1. HUMIRA [Suspect]
     Dates: start: 20091223
  2. HUMIRA [Suspect]
     Indication: RHEUMATOID ARTHRITIS
     Dates: start: 20070101

REACTIONS (1)
  - KNEE ARTHROPLASTY [None]
